FAERS Safety Report 20069234 (Version 1)
Quarter: 2021Q4

REPORT INFORMATION
  Report Type: Spontaneous
  Country: US (occurrence: US)
  Receive Date: 20211115
  Receipt Date: 20211115
  Transmission Date: 20220303
  Serious: No
  Sender: FDA-Public Use
  Company Number: US-PFIZER INC-202101073188

PATIENT
  Age: 63 Year
  Sex: Female
  Weight: 87.075 kg

DRUGS (4)
  1. IBRANCE [Suspect]
     Active Substance: PALBOCICLIB
     Indication: Breast cancer female
     Dosage: 100 MG, CYCLIC (21DAYS ON, 7 DAYS OFF)
     Route: 048
     Dates: start: 20200214
  2. TYLENOL [Concomitant]
     Active Substance: ACETAMINOPHEN
  3. LETROZOLE [Concomitant]
     Active Substance: LETROZOLE
  4. VITAMIN D3 [Concomitant]
     Active Substance: CHOLECALCIFEROL
     Dosage: UNK

REACTIONS (1)
  - Neoplasm progression [Unknown]
